FAERS Safety Report 4454358-8 (Version None)
Quarter: 2004Q3

REPORT INFORMATION
  Report Type: 
  Country: None (occurrence: None)
  Receive Date: 20040917
  Receipt Date: 20040917
  Transmission Date: 20050211
  Serious: Yes (Death, Life-Threatening, Hospitalization)
  Sender: FDA-Public Use
  Company Number: None

PATIENT
  Age: 65 Year
  Sex: Male
  Weight: 141.8 kg

DRUGS (11)
  1. COUMADIN [Suspect]
     Indication: ATRIAL FIBRILLATION
     Dosage: 2.5 MG PO QD
     Route: 048
     Dates: start: 20030319, end: 20030804
  2. AMITRIPTYLINE HCL [Concomitant]
  3. ACTOS [Concomitant]
  4. GLIPIZIDE [Concomitant]
  5. GEMFIBROZIL [Concomitant]
  6. LASIX [Concomitant]
  7. METOPROLOL [Concomitant]
  8. HYDROCHLOROTHIAZIDE [Concomitant]
  9. ZOCOR [Concomitant]
  10. LISINOPRIL [Concomitant]
  11. TYL #3 [Concomitant]

REACTIONS (4)
  - CEREBELLAR HAEMATOMA [None]
  - HAEMATOMA [None]
  - HYDROCEPHALUS [None]
  - INTERNATIONAL NORMALISED RATIO INCREASED [None]
